FAERS Safety Report 4839313-8 (Version None)
Quarter: 2005Q4

REPORT INFORMATION
  Report Type: 
  Country: None (occurrence: None)
  Receive Date: 20051129
  Receipt Date: 20041228
  Transmission Date: 20060501
  Serious: No
  Sender: FDA-Public Use
  Company Number: US-GLAXOSMITHKLINE-A0538561A

PATIENT
  Age: 48 Year
  Sex: Female

DRUGS (7)
  1. WELLBUTRIN [Suspect]
     Indication: DEPRESSION
     Dosage: 300MG IN THE MORNING
     Route: 048
     Dates: start: 19980101
  2. TAXOL [Concomitant]
  3. ZESTRIL [Concomitant]
  4. ZYRTEC [Concomitant]
  5. ATIVAN [Concomitant]
  6. KEPPRA [Concomitant]
  7. NEUPOGEN [Concomitant]

REACTIONS (3)
  - CRYING [None]
  - DEPRESSION [None]
  - DRUG INEFFECTIVE [None]
